FAERS Safety Report 10978031 (Version 11)
Quarter: 2016Q2

REPORT INFORMATION
  Report Type: Report from Study
  Country: US (occurrence: US)
  Receive Date: 20150402
  Receipt Date: 20160617
  Transmission Date: 20160815
  Serious: Yes (Other)
  Sender: FDA-Public Use
  Company Number: US-SA-2015SA040240

PATIENT
  Age: 60 Year
  Sex: Female

DRUGS (14)
  1. LOPERAMIDE HYDROCHLORIDE. [Concomitant]
     Active Substance: LOPERAMIDE HYDROCHLORIDE
     Dosage: 2 DAILY AS NEEDED
  2. EXCEDRIN [Concomitant]
     Active Substance: ACETAMINOPHEN\ASPIRIN\CAFFEINE
  3. LEMTRADA [Suspect]
     Active Substance: ALEMTUZUMAB
     Indication: RELAPSING-REMITTING MULTIPLE SCLEROSIS
     Dosage: FREQUENCY: 1 VIAL/DAY
     Route: 041
     Dates: start: 20150323, end: 20150327
  4. LEMTRADA [Suspect]
     Active Substance: ALEMTUZUMAB
     Indication: RELAPSING-REMITTING MULTIPLE SCLEROSIS
     Route: 041
     Dates: start: 20160419, end: 20160421
  5. ATIVAN [Concomitant]
     Active Substance: LORAZEPAM
     Dosage: DAILY AS NEEDED
  6. GABAPENTIN. [Concomitant]
     Active Substance: GABAPENTIN
     Dosage: 5 DAILY
  7. VITAMIN D [Concomitant]
     Active Substance: CHOLECALCIFEROL
  8. OXYBUTYNIN CHLORIDE. [Concomitant]
     Active Substance: OXYBUTYNIN CHLORIDE
  9. LEXAPRO [Concomitant]
     Active Substance: ESCITALOPRAM OXALATE
  10. VALACICLOVIR [Concomitant]
     Active Substance: VALACYCLOVIR HYDROCHLORIDE
  11. DEXAMFETAMINE/AMFETAMINE [Concomitant]
  12. NEXIUM [Concomitant]
     Active Substance: ESOMEPRAZOLE MAGNESIUM
  13. ZANTAC [Concomitant]
     Active Substance: RANITIDINE HYDROCHLORIDE
  14. TYLENOL [Concomitant]
     Active Substance: ACETAMINOPHEN

REACTIONS (12)
  - Hemiparesis [Recovering/Resolving]
  - Headache [Recovering/Resolving]
  - Multiple sclerosis [Unknown]
  - Pain [Recovering/Resolving]
  - Paraesthesia [Unknown]
  - Hypoaesthesia [Unknown]
  - Chills [Recovering/Resolving]
  - Candida infection [Recovered/Resolved]
  - Gait disturbance [Recovered/Resolved]
  - Balance disorder [Unknown]
  - Stress [Unknown]
  - Herpes zoster [Recovered/Resolved]

NARRATIVE: CASE EVENT DATE: 2015
